FAERS Safety Report 8607780-X (Version None)
Quarter: 2012Q3

REPORT INFORMATION
  Report Type: 
  Country: None (occurrence: None)
  Receive Date: 20120821
  Receipt Date: 20120816
  Transmission Date: 20120928
  Serious: Yes (Other)
  Sender: FDA-Public Use
  Company Number: PHHY2012CA071784

PATIENT
  Sex: Female

DRUGS (1)
  1. SANDOSTATIN LAR [Suspect]
     Indication: METASTATIC CARCINOID TUMOUR
     Dosage: 30 MG, EVERY THREE WEEKS
     Route: 030
     Dates: start: 20110615

REACTIONS (2)
  - ANKLE FRACTURE [None]
  - BLOOD PRESSURE INCREASED [None]
